FAERS Safety Report 19469324 (Version 2)
Quarter: 2021Q3

REPORT INFORMATION
  Report Type: Spontaneous
  Country: GB (occurrence: GB)
  Receive Date: 20210628
  Receipt Date: 20210811
  Transmission Date: 20211014
  Serious: Yes (Life-Threatening, Disabling, Other)
  Sender: FDA-Public Use
  Company Number: GB-ELI_LILLY_AND_COMPANY-GB202106010517

PATIENT
  Age: 22 Year
  Sex: Female

DRUGS (4)
  1. ZYPREXA [Suspect]
     Active Substance: OLANZAPINE
     Indication: PSYCHOTIC DISORDER
     Dosage: 20 MG, UNK
     Route: 048
     Dates: start: 20200717
  2. DIAZEPAM. [Concomitant]
     Active Substance: DIAZEPAM
     Dosage: 30 ML, UNK
     Route: 065
  3. PROMAZINE HYDROCHLORIDE [Concomitant]
     Active Substance: PROMAZINE HYDROCHLORIDE
     Dosage: 20 ML, UNK
     Route: 065
  4. HALOPERIDOL DECANOATE. [Suspect]
     Active Substance: HALOPERIDOL DECANOATE
     Indication: PRODUCT USED FOR UNKNOWN INDICATION
     Dosage: UNK, UNKNOWN
     Route: 051
     Dates: start: 20200721

REACTIONS (14)
  - Emotional distress [Recovered/Resolved with Sequelae]
  - Constipation [Unknown]
  - Taste disorder [Unknown]
  - Abdominal pain [Unknown]
  - Hyperglycaemia [Not Recovered/Not Resolved]
  - Pyrexia [Unknown]
  - Depression [Unknown]
  - Parkinsonism [Recovered/Resolved with Sequelae]
  - Metabolic disorder [Not Recovered/Not Resolved]
  - Weight increased [Not Recovered/Not Resolved]
  - Arrhythmia [Unknown]
  - Seizure [Recovered/Resolved with Sequelae]
  - Tachycardia [Not Recovered/Not Resolved]
  - Haemostasis [Recovered/Resolved with Sequelae]

NARRATIVE: CASE EVENT DATE: 20200717
